FAERS Safety Report 8047014-0 (Version None)
Quarter: 2012Q1

REPORT INFORMATION
  Report Type: 
  Country: None (occurrence: None)
  Receive Date: 20120116
  Receipt Date: 20111118
  Transmission Date: 20120608
  Serious: No
  Sender: FDA-Public Use
  Company Number: US-MYLANLABS-2011S1023848

PATIENT
  Age: 57 Year
  Sex: Female
  Weight: 66.68 kg

DRUGS (3)
  1. VALIUM [Concomitant]
     Indication: INSOMNIA
  2. LIOTHYRONINE SODIUM [Suspect]
     Indication: HYPOTHYROIDISM
     Route: 048
     Dates: start: 20111018, end: 20111104
  3. LEXAPRO [Concomitant]
     Indication: ANXIETY
     Dates: start: 20110201

REACTIONS (3)
  - ARTHRALGIA [None]
  - INSOMNIA [None]
  - MALAISE [None]
